FAERS Safety Report 9548946 (Version 1)
Quarter: 2013Q2

REPORT INFORMATION
  Report Type: Spontaneous
  Country: US (occurrence: None)
  Receive Date: 20130611
  Receipt Date: 20130611
  Transmission Date: 20140414
  Serious: Yes (Hospitalization)
  Sender: FDA-Public Use
  Company Number: 1000027449

PATIENT
  Age: 81 Year
  Sex: Female

DRUGS (2)
  1. NAMENDA [Suspect]
     Indication: DEMENTIA ALZHEIMER^S TYPE
     Route: 048
     Dates: start: 201111
  2. SYNTHROID (LEVOTHYROXINE SODIUM) [Concomitant]

REACTIONS (3)
  - Loss of consciousness [None]
  - Insomnia [None]
  - Dyskinesia [None]
